FAERS Safety Report 5874857-1 (Version None)
Quarter: 2008Q3

REPORT INFORMATION
  Report Type: 
  Country: None (occurrence: None)
  Receive Date: 20080904
  Receipt Date: 20080820
  Transmission Date: 20090109
  Serious: Yes (Hospitalization, Disabling, Other)
  Sender: FDA-Public Use
  Company Number: CIP08001077

PATIENT
  Age: 52 Year
  Sex: Male

DRUGS (20)
  1. DIDRONEL [Suspect]
     Indication: OSTEOPOROSIS
     Dosage: 200 MG AT BEDTIME, ORAL
     Route: 048
     Dates: start: 20050506, end: 20050520
  2. DIDRONEL [Suspect]
     Indication: OSTEOPOROSIS
     Dosage: 200 MG AT BEDTIME, ORAL
     Route: 048
     Dates: start: 20050731, end: 20050814
  3. DIDRONEL [Suspect]
     Indication: OSTEOPOROSIS
     Dosage: 200 MG AT BEDTIME, ORAL
     Route: 048
     Dates: start: 20050930, end: 20060106
  4. DIDRONEL [Suspect]
     Indication: OSTEOPOROSIS
     Dosage: 200 MG AT BEDTIME, ORAL
     Route: 048
     Dates: start: 20060222, end: 20071101
  5. DIDRONEL [Suspect]
     Indication: OSTEOPOROSIS
     Dosage: 200 MG AT BEDTIME, ORAL
     Route: 048
     Dates: start: 20080320, end: 20080419
  6. NEUROVITAN (CYANOCOBALAMIN, PYRIDOXINE HYDROCHLORIDE, THIAMINE HYDROCH [Concomitant]
  7. ALLOPURINOL [Concomitant]
  8. TAURINE (TAURINE) [Concomitant]
  9. LANSOPRAZOLE [Concomitant]
  10. LIVACT (VALINE, LEUCINE, ISOLEUCINE) [Concomitant]
  11. METHYCOBAL (BECOBALAMIN) [Concomitant]
  12. GASTROM (ECABET MONOSODIUM) [Concomitant]
  13. PROMAC (POLAPREZINC) [Concomitant]
  14. ANPLAG (SARPOGRELATE HYDROCHLORIDE) [Concomitant]
  15. PORTOLAC (LACTITOL) [Concomitant]
  16. TULOBUTEROL (TULOBUTEROL) [Concomitant]
  17. LACTULOSE [Concomitant]
  18. METLIGINE (MIDODRINE HYDROCHLORIDE) [Concomitant]
  19. MOHRUS (KETOPROFEN) [Concomitant]
  20. CALTAN (CALCIUM CARBONATE) [Concomitant]

REACTIONS (16)
  - AMMONIA INCREASED [None]
  - ARTHRALGIA [None]
  - BONE PAIN [None]
  - BURSITIS [None]
  - DECREASED ACTIVITY [None]
  - FEMORAL NECK FRACTURE [None]
  - GAIT DISTURBANCE [None]
  - HYPOPROTEINAEMIA [None]
  - INCORRECT DRUG ADMINISTRATION DURATION [None]
  - MUSCULOSKELETAL PAIN [None]
  - PAPILLOPHLEBITIS [None]
  - PLEURAL EFFUSION [None]
  - QUALITY OF LIFE DECREASED [None]
  - RIB FRACTURE [None]
  - VASCULAR CALCIFICATION [None]
  - VASCULITIS [None]
